FAERS Safety Report 11193047 (Version 3)
Quarter: 2015Q2

REPORT INFORMATION
  Report Type: Spontaneous
  Country: GR (occurrence: GR)
  Receive Date: 20150616
  Receipt Date: 20150624
  Transmission Date: 20150821
  Serious: Yes (Other)
  Sender: FDA-Public Use
  Company Number: GR-JNJFOC-20150609322

PATIENT
  Age: 53 Year
  Sex: Male
  Weight: 88 kg

DRUGS (4)
  1. EZETROL [Concomitant]
     Active Substance: EZETIMIBE
     Indication: HYPERCHOLESTEROLAEMIA
     Route: 065
     Dates: start: 20120510
  2. REMICADE [Suspect]
     Active Substance: INFLIXIMAB
     Indication: PSORIASIS
     Route: 042
     Dates: start: 20071001
  3. REMICADE [Suspect]
     Active Substance: INFLIXIMAB
     Indication: PSORIASIS
     Dosage: 4 VIALS FOR EACH INFUSION
     Route: 042
     Dates: start: 2006, end: 2007
  4. REMICADE [Suspect]
     Active Substance: INFLIXIMAB
     Indication: PSORIASIS
     Dosage: 4 VIALS FOR EACH INFUSION
     Route: 042
     Dates: start: 2015, end: 20150615

REACTIONS (3)
  - Hyperkeratosis [Unknown]
  - Squamous cell carcinoma [Unknown]
  - Basal cell carcinoma [Recovering/Resolving]

NARRATIVE: CASE EVENT DATE: 2014
